FAERS Safety Report 23530360 (Version 2)
Quarter: 2024Q1

REPORT INFORMATION
  Report Type: Report from Study
  Country: CA (occurrence: CA)
  Receive Date: 20240216
  Receipt Date: 20240308
  Transmission Date: 20240409
  Serious: Yes (Hospitalization, Other)
  Sender: FDA-Public Use
  Company Number: CA-TAKEDA-2024TUS004294

PATIENT
  Sex: Male

DRUGS (11)
  1. VEDOLIZUMAB [Suspect]
     Active Substance: VEDOLIZUMAB
     Indication: Crohn^s disease
     Dosage: 300 MILLIGRAM
     Route: 042
     Dates: start: 20160428
  2. VEDOLIZUMAB [Suspect]
     Active Substance: VEDOLIZUMAB
     Dosage: 300 MILLIGRAM, Q4WEEKS
     Route: 042
  3. PENTASA [Suspect]
     Active Substance: MESALAMINE
     Indication: Product used for unknown indication
     Dosage: UNK
     Route: 065
  4. LEVOFLOXACIN [Suspect]
     Active Substance: LEVOFLOXACIN
     Indication: Testicular swelling
     Dosage: 500 MILLIGRAM, QD
     Route: 065
     Dates: start: 20240129
  5. LEVOFLOXACIN [Suspect]
     Active Substance: LEVOFLOXACIN
     Indication: Orchitis
  6. PREDNISONE [Suspect]
     Active Substance: PREDNISONE
     Indication: Product used for unknown indication
     Dosage: 35 MILLIGRAM, QD
     Route: 065
     Dates: start: 20160226
  7. FOLATE SODIUM [Suspect]
     Active Substance: FOLATE SODIUM
     Indication: Product used for unknown indication
     Dosage: UNK
     Route: 065
  8. BUTYLSCOPOLAMINE BROMIDE [Concomitant]
     Active Substance: BUTYLSCOPOLAMINE BROMIDE
     Dosage: 10 MILLIGRAM
  9. METHOTREXATE [Concomitant]
     Active Substance: METHOTREXATE
     Dosage: 15 MILLIGRAM, 1/WEEK
  10. UROFOLLITROPIN [Concomitant]
     Active Substance: UROFOLLITROPIN
     Dosage: 1 MILLIGRAM, 1/WEEK
  11. IRON [Concomitant]
     Active Substance: IRON
     Dosage: 500 MILLIGRAM, QD

REACTIONS (15)
  - Orchitis [Unknown]
  - Haematochezia [Unknown]
  - Anal stenosis [Unknown]
  - Cholangitis sclerosing [Unknown]
  - Off label use [Unknown]
  - Treatment failure [Unknown]
  - Diarrhoea [Recovering/Resolving]
  - Faeces hard [Unknown]
  - Abdominal discomfort [Unknown]
  - Anaemia [Unknown]
  - Gastrointestinal inflammation [Unknown]
  - Interleukin level increased [Unknown]
  - Lactose intolerance [Unknown]
  - Pain [Unknown]
  - Pyrexia [Unknown]
